FAERS Safety Report 18436476 (Version 2)
Quarter: 2020Q4

REPORT INFORMATION
  Report Type: Spontaneous
  Country: DE (occurrence: DE)
  Receive Date: 20201028
  Receipt Date: 20201209
  Transmission Date: 20210114
  Serious: Yes (Hospitalization, Other)
  Sender: FDA-Public Use
  Company Number: DE-SA-2020SA301454

PATIENT

DRUGS (2)
  1. DUPIXENT [Suspect]
     Active Substance: DUPILUMAB
     Dosage: 300 MG, QOW
     Route: 058
     Dates: start: 2020, end: 20200408
  2. DUPIXENT [Suspect]
     Active Substance: DUPILUMAB
     Indication: DERMATITIS ATOPIC
     Dosage: 600 MG, 1X
     Route: 058
     Dates: start: 20200212, end: 20200212

REACTIONS (7)
  - Haematoma [Unknown]
  - Testicular pain [Recovered/Resolved]
  - Wound drainage [Unknown]
  - Testicular necrosis [Recovered/Resolved]
  - Testicular disorder [Recovered/Resolved]
  - Ischaemia [Recovered/Resolved]
  - Wound [Unknown]

NARRATIVE: CASE EVENT DATE: 2020
